FAERS Safety Report 6173032-3 (Version None)
Quarter: 2009Q2

REPORT INFORMATION
  Report Type: 
  Country: None (occurrence: None)
  Receive Date: 20090430
  Receipt Date: 20090425
  Transmission Date: 20091009
  Serious: Yes (Hospitalization)
  Sender: FDA-Public Use
  Company Number: US-AVENTIS-200913603US

PATIENT
  Age: 56 Year
  Sex: Female

DRUGS (8)
  1. LANTUS [Suspect]
     Route: 058
     Dates: start: 20070101
  2. OPTICLIK (INSULIN INJECTION PEN) [Suspect]
     Dates: start: 20070101
  3. GLYBURIDE [Concomitant]
  4. GLUCOPHAGE [Concomitant]
  5. PROTONIX [Concomitant]
  6. PRAVACHOL [Concomitant]
  7. LOPRESSOR [Concomitant]
  8. REGLAN [Concomitant]

REACTIONS (1)
  - CHEST PAIN [None]
